FAERS Safety Report 7884833 (Version 2)
Quarter: 2013Q2

REPORT INFORMATION
  Report Type: Spontaneous
  Country: US (occurrence: US)
  Receive Date: 20110405
  Receipt Date: 20130606
  Transmission Date: 20140414
  Serious: Yes (Hospitalization, Disabling)
  Sender: FDA-Public Use
  Company Number: US-JNJFOC-20100706603

PATIENT
  Age: 41 Year
  Sex: Female

DRUGS (6)
  1. LEVAQUIN [Suspect]
     Indication: PNEUMONIA
     Route: 065
  2. LEVAQUIN [Suspect]
     Indication: ACUTE SINUSITIS
     Route: 065
  3. MEDROL DOSE PACK [Suspect]
     Indication: PNEUMONIA
     Route: 065
  4. CIPROFLOXACIN [Suspect]
     Indication: BACTERIAL INFECTION
     Route: 048
  5. CIPROFLOXACIN [Suspect]
     Indication: FOOD POISONING
     Route: 048
  6. PREDNISONE [Suspect]
     Indication: PNEUMONIA
     Route: 065

REACTIONS (6)
  - Myalgia [Recovering/Resolving]
  - Arthralgia [Recovering/Resolving]
  - Tendon disorder [Unknown]
  - Hand deformity [Unknown]
  - Autoimmune disorder [Unknown]
  - Drug ineffective [Unknown]
